FAERS Safety Report 18123120 (Version 1)
Quarter: 2020Q3

REPORT INFORMATION
  Report Type: Spontaneous
  Country: ES (occurrence: ES)
  Receive Date: 20200807
  Receipt Date: 20200807
  Transmission Date: 20201103
  Serious: Yes (Life-Threatening, Hospitalization)
  Sender: FDA-Public Use
  Company Number: ES-CADILA HEALTHCARE LIMITED-ES-ZYDUS-028182

PATIENT

DRUGS (2)
  1. ACENOCOUMAROL [Suspect]
     Active Substance: ACENOCOUMAROL
     Indication: ATRIAL FIBRILLATION
     Dosage: (INTERVAL :1 DAYS)
     Route: 048
     Dates: start: 2003, end: 20171012
  2. SIMVASTATIN. [Suspect]
     Active Substance: SIMVASTATIN
     Indication: DYSLIPIDAEMIA
     Dosage: 40 MILLIGRAM,(INTERVAL :1 DAYS)
     Route: 048
     Dates: start: 2003, end: 20171012

REACTIONS (1)
  - Haemorrhage intracranial [Unknown]

NARRATIVE: CASE EVENT DATE: 20171012
